FAERS Safety Report 6674321-6 (Version None)
Quarter: 2010Q2

REPORT INFORMATION
  Report Type: 
  Country: None (occurrence: None)
  Receive Date: 20100409
  Receipt Date: 20100330
  Transmission Date: 20101027
  Serious: Yes (Hospitalization)
  Sender: FDA-Public Use
  Company Number: US-NOVOPROD-306415

PATIENT
  Sex: Female
  Weight: 54.422 kg

DRUGS (6)
  1. VAGIFEM [Suspect]
     Indication: VULVOVAGINAL DRYNESS
     Dosage: 25 UG, BIW
     Route: 067
     Dates: start: 20060101, end: 20091228
  2. VAGIFEM [Suspect]
     Indication: SEXUALLY ACTIVE
  3. RAMIPRIL [Concomitant]
     Indication: LABILE HYPERTENSION
     Dosage: 50 MG, QD
     Route: 048
  4. TOPROL-XL [Concomitant]
     Indication: LABILE HYPERTENSION
     Dosage: 50 MG, QD
     Route: 048
  5. NORVASC [Concomitant]
     Indication: LABILE HYPERTENSION
     Dosage: 5 MG, QD
     Route: 048
  6. OMEPRAZOLE [Concomitant]
     Indication: GASTROOESOPHAGEAL REFLUX DISEASE
     Dosage: 1 TAB, QD
     Route: 048

REACTIONS (4)
  - EMBOLIC STROKE [None]
  - HEART RATE IRREGULAR [None]
  - HYPERTENSION [None]
  - MALAISE [None]
